FAERS Safety Report 5743349-2 (Version None)
Quarter: 2008Q2

REPORT INFORMATION
  Report Type: 
  Country: None (occurrence: None)
  Receive Date: 20080519
  Receipt Date: 20080509
  Transmission Date: 20081010
  Serious: Yes (Hospitalization, Other)
  Sender: FDA-Public Use
  Company Number: US-PFIZER INC-2008040963

PATIENT
  Sex: Male
  Weight: 106.81 kg

DRUGS (13)
  1. NORVASC [Suspect]
     Indication: HYPERTENSION
     Route: 048
  2. LIPITOR [Suspect]
     Indication: BLOOD CHOLESTEROL INCREASED
     Route: 048
  3. TOPROL-XL [Concomitant]
  4. PLAVIX [Concomitant]
  5. PLETAL [Concomitant]
  6. ZETIA [Concomitant]
  7. LANTUS [Concomitant]
  8. INSULIN GLULISINE [Concomitant]
  9. CYMBALTA [Concomitant]
  10. BUSPAR [Concomitant]
  11. HYDROCODONE BITARTRATE [Concomitant]
  12. OXYCONTIN [Concomitant]
  13. FENTANYL CITRATE [Concomitant]
     Route: 062

REACTIONS (8)
  - ABSCESS [None]
  - ARTHRALGIA [None]
  - ERYTHEMA [None]
  - HEPATIC ENZYME INCREASED [None]
  - OEDEMA PERIPHERAL [None]
  - PAIN IN EXTREMITY [None]
  - SHOCK HYPOGLYCAEMIC [None]
  - ULCER [None]
